FAERS Safety Report 7581749-9 (Version None)
Quarter: 2011Q2

REPORT INFORMATION
  Report Type: 
  Country: None (occurrence: None)
  Receive Date: 20110629
  Receipt Date: 20110628
  Transmission Date: 20111010
  Serious: Yes (Hospitalization)
  Sender: FDA-Public Use
  Company Number: DE-ABBOTT-11P-062-0718767-00

PATIENT
  Sex: Male
  Weight: 79 kg

DRUGS (3)
  1. BUDENOFALK [Concomitant]
     Indication: PRODUCT USED FOR UNKNOWN INDICATION
     Dosage: PER DAY
     Route: 048
  2. HUMIRA [Suspect]
     Indication: CROHN'S DISEASE
     Dosage: 80 MG LOADING DOSE
     Route: 058
     Dates: start: 20100601
  3. HUMIRA [Suspect]
     Route: 058

REACTIONS (3)
  - PARAESTHESIA [None]
  - EPILEPSY [None]
  - NERVOUS SYSTEM DISORDER [None]
